FAERS Safety Report 23544238 (Version 1)
Quarter: 2024Q1

REPORT INFORMATION
  Report Type: Spontaneous
  Country: US (occurrence: US)
  Receive Date: 20240220
  Receipt Date: 20240220
  Transmission Date: 20240410
  Serious: Yes (Hospitalization, Other)
  Sender: FDA-Public Use
  Company Number: US-SANDOZ-SDZ2024US014934

PATIENT
  Age: 67 Year
  Sex: Male
  Weight: 87.982 kg

DRUGS (28)
  1. CYCLOPHOSPHAMIDE [Suspect]
     Active Substance: CYCLOPHOSPHAMIDE
     Indication: Acute lymphocytic leukaemia
     Dosage: 1000 MG
     Route: 042
     Dates: start: 20240127, end: 20240127
  2. CYCLOPHOSPHAMIDE [Suspect]
     Active Substance: CYCLOPHOSPHAMIDE
     Indication: B-cell lymphoma
     Dosage: 1000 MG
     Route: 042
     Dates: start: 20240125, end: 20240125
  3. FLUDARABINE [Suspect]
     Active Substance: FLUDARABINE PHOSPHATE
     Indication: Acute lymphocytic leukaemia
     Dosage: UNK
     Route: 042
     Dates: start: 20240127, end: 20240127
  4. FLUDARABINE [Suspect]
     Active Substance: FLUDARABINE PHOSPHATE
     Indication: B-cell lymphoma
     Dosage: UNK
     Route: 042
     Dates: start: 20240125, end: 20240125
  5. ACYCLOVIR [Concomitant]
     Active Substance: ACYCLOVIR
     Indication: Prophylaxis
     Dosage: UNK
     Route: 048
     Dates: start: 202310
  6. ALLOPURINOL [Concomitant]
     Active Substance: ALLOPURINOL
     Indication: Blood uric acid
     Dosage: UNK
     Route: 048
     Dates: start: 20240124
  7. ASCORBIC ACID [Concomitant]
     Active Substance: ASCORBIC ACID
     Indication: Prophylaxis
     Dosage: UNK
     Route: 048
     Dates: start: 1999
  8. ASPIRIN [Concomitant]
     Active Substance: ASPIRIN
     Indication: Supraventricular tachycardia
     Dosage: UNK
     Route: 048
     Dates: start: 2009
  9. BENADRYL [Concomitant]
     Active Substance: DIPHENHYDRAMINE HYDROCHLORIDE
     Indication: Prophylaxis
     Dosage: UNK
     Route: 048
     Dates: start: 20240130, end: 20240130
  10. CHOLECALCIFEROL [Concomitant]
     Active Substance: CHOLECALCIFEROL
     Indication: Prophylaxis
     Dosage: UNK
     Route: 048
     Dates: start: 2021
  11. COLACE [Concomitant]
     Active Substance: DOCUSATE SODIUM
     Indication: Constipation
     Dosage: UNK
     Route: 048
     Dates: start: 202301
  12. FAMOTIDINE [Concomitant]
     Active Substance: FAMOTIDINE
     Indication: Gastrooesophageal reflux disease
     Route: 048
  13. GUAIFENESIN [Concomitant]
     Active Substance: GUAIFENESIN
     Indication: Allergy to animal
     Dosage: UNK
     Route: 048
     Dates: start: 2009
  14. INSULIN LISPRO [Concomitant]
     Active Substance: INSULIN LISPRO
     Indication: Diabetes mellitus
     Dosage: UNK
     Route: 058
     Dates: start: 2004
  15. LEVAQUIN [Concomitant]
     Active Substance: LEVOFLOXACIN
     Indication: Product used for unknown indication
     Dosage: UNK
     Route: 048
     Dates: start: 20240130, end: 20240130
  16. LEVOTHYROXINE [Concomitant]
     Active Substance: LEVOTHYROXINE\LEVOTHYROXINE SODIUM
     Indication: Hypothyroidism
     Dosage: UNK
     Route: 048
     Dates: start: 2019
  17. MAGNESIUM SULFATE [Concomitant]
     Active Substance: MAGNESIUM SULFATE\MAGNESIUM SULFATE HEPTAHYDRATE
     Indication: Electrolyte substitution therapy
     Dosage: UNK
     Route: 042
     Dates: start: 20240131, end: 20240131
  18. MELATONIN [Concomitant]
     Active Substance: MELATONIN
     Indication: Insomnia
     Dosage: UNK
     Route: 048
     Dates: start: 20240125
  19. PHENYLEPHRINE HCL [Concomitant]
     Active Substance: PHENYLEPHRINE HYDROCHLORIDE
     Indication: Allergy to animal
     Dosage: UNK
     Route: 045
     Dates: start: 2004
  20. PHENYLEPHRINE HCL [Concomitant]
     Active Substance: PHENYLEPHRINE HYDROCHLORIDE
     Indication: Hypersensitivity
     Route: 045
  21. POTASSIUM CHLORIDE [Concomitant]
     Active Substance: POTASSIUM CHLORIDE
     Indication: Electrolyte substitution therapy
     Dosage: UNK
     Route: 048
     Dates: start: 20240131, end: 20240131
  22. SENNA [Concomitant]
     Active Substance: SENNA LEAF\SENNOSIDES\SENNOSIDES A AND B
     Indication: Constipation
     Dosage: UNK
     Route: 048
     Dates: start: 202301
  23. SPIRONOLACTONE [Concomitant]
     Active Substance: SPIRONOLACTONE
     Indication: Hyperlipidaemia
     Dosage: UNK
     Route: 048
     Dates: start: 202303, end: 20240125
  24. TAMSULOSIN [Concomitant]
     Active Substance: TAMSULOSIN
     Indication: Nephrolithiasis
     Dosage: UNK
     Route: 048
     Dates: start: 2020
  25. TYLENOL [Concomitant]
     Active Substance: ACETAMINOPHEN
     Indication: Prophylaxis
     Dosage: UNK
     Route: 048
     Dates: start: 20240130, end: 20240130
  26. VITAMIN E [Concomitant]
     Active Substance: .ALPHA.-TOCOPHEROL
     Indication: Prophylaxis
     Dosage: UNK
     Route: 048
     Dates: start: 2019
  27. ZINC GLUCONATE [Concomitant]
     Active Substance: ZINC GLUCONATE
     Indication: Prophylaxis
     Dosage: UNK
     Route: 048
     Dates: start: 2021
  28. ZINC PICOLINATE [Concomitant]
     Active Substance: ZINC PICOLINATE
     Indication: Prophylaxis
     Dosage: UNK
     Route: 048
     Dates: start: 2021

REACTIONS (1)
  - Cytokine release syndrome [Not Recovered/Not Resolved]

NARRATIVE: CASE EVENT DATE: 20240204
